FAERS Safety Report 21963995 (Version 1)
Quarter: 2023Q1

REPORT INFORMATION
  Report Type: Spontaneous
  Country: US (occurrence: None)
  Receive Date: 20230207
  Receipt Date: 20230207
  Transmission Date: 20230417
  Serious: Yes (Hospitalization, Other)
  Sender: FDA-Public Use
  Company Number: 2023A029065

PATIENT
  Age: 70 Year
  Sex: Male

DRUGS (4)
  1. CALQUENCE [Suspect]
     Active Substance: ACALABRUTINIB
     Indication: Lymphoma
     Route: 048
     Dates: end: 20221119
  2. PLAVIX [Suspect]
     Active Substance: CLOPIDOGREL BISULFATE
     Indication: Transient ischaemic attack
     Dates: end: 20221117
  3. XARACOLL [Suspect]
     Active Substance: BUPIVACAINE
     Dates: start: 20221122
  4. ASPIRIN [Concomitant]
     Active Substance: ASPIRIN
     Indication: Pain

REACTIONS (6)
  - Transient ischaemic attack [Not Recovered/Not Resolved]
  - Inguinal hernia [Not Recovered/Not Resolved]
  - Platelet dysfunction [Unknown]
  - Post procedural haematoma [Unknown]
  - Procedural pain [Unknown]
  - Bloody discharge [Unknown]

NARRATIVE: CASE EVENT DATE: 20221117
